FAERS Safety Report 13592473 (Version 3)
Quarter: 2017Q2

REPORT INFORMATION
  Report Type: Report from Study
  Country: US (occurrence: US)
  Receive Date: 20170530
  Receipt Date: 20170615
  Transmission Date: 20170830
  Serious: Yes (Other)
  Sender: FDA-Public Use
  Company Number: US-GILEAD-2017-0274228

PATIENT
  Age: 51 Year
  Sex: Female

DRUGS (1)
  1. LEDIPASVIR/SOFOSBUVIR [Suspect]
     Active Substance: LEDIPASVIR\SOFOSBUVIR
     Indication: CHRONIC HEPATITIS C
     Dosage: 1 DF, QD
     Route: 048
     Dates: start: 20170509

REACTIONS (11)
  - Pain in extremity [Unknown]
  - Choking [Not Recovered/Not Resolved]
  - Rhinorrhoea [Unknown]
  - Hypersensitivity [Not Recovered/Not Resolved]
  - Fatigue [Recovered/Resolved]
  - Hypersomnia [Unknown]
  - Cough [Unknown]
  - Paranasal sinus hypersecretion [Not Recovered/Not Resolved]
  - Diarrhoea [Recovered/Resolved]
  - Abdominal pain [Recovered/Resolved]
  - Headache [Unknown]
